FAERS Safety Report 11905951 (Version 1)
Quarter: 2016Q1

REPORT INFORMATION
  Report Type: Spontaneous
  Country: US (occurrence: None)
  Receive Date: 20160108
  Receipt Date: 20160108
  Transmission Date: 20160526
  Serious: No
  Sender: FDA-Public Use
  Company Number: None

PATIENT
  Age: 24 Year
  Sex: Female
  Weight: 61.24 kg

DRUGS (3)
  1. SIMPLY RIGHT CETIRIZINE HYDROCHLORIDE [Suspect]
     Active Substance: CETIRIZINE HYDROCHLORIDE
     Indication: HYPERSENSITIVITY
     Dosage: 1 PILL
     Route: 048
     Dates: start: 20150615, end: 20151115
  2. MIRENA [Concomitant]
     Active Substance: LEVONORGESTREL
  3. SERTRALINE [Concomitant]
     Active Substance: SERTRALINE HYDROCHLORIDE

REACTIONS (2)
  - Pruritus generalised [None]
  - Drug withdrawal syndrome [None]

NARRATIVE: CASE EVENT DATE: 20151115
